FAERS Safety Report 22965811 (Version 4)
Quarter: 2023Q4

REPORT INFORMATION
  Report Type: Report from Study
  Country: US (occurrence: US)
  Receive Date: 20230921
  Receipt Date: 20231127
  Transmission Date: 20240110
  Serious: Yes (Other)
  Sender: FDA-Public Use
  Company Number: US-BAYER-2023A130715

PATIENT
  Age: 62 Year
  Sex: Female

DRUGS (2)
  1. ADEMPAS [Suspect]
     Active Substance: RIOCIGUAT
     Indication: Pulmonary arterial hypertension
     Dosage: 0.5 MG, TID
     Route: 048
     Dates: start: 202308
  2. ADEMPAS [Suspect]
     Active Substance: RIOCIGUAT
     Indication: Pulmonary arterial hypertension
     Dosage: 1 MG

REACTIONS (14)
  - Syncope [None]
  - Hypotension [Not Recovered/Not Resolved]
  - Hypotension [Not Recovered/Not Resolved]
  - Blood pressure fluctuation [None]
  - Fatigue [None]
  - Intentional dose omission [None]
  - Headache [Recovered/Resolved]
  - Orthostatic hypotension [None]
  - Nausea [None]
  - Dizziness [Not Recovered/Not Resolved]
  - Incorrect dose administered [None]
  - Headache [None]
  - Dyspepsia [None]
  - Dyspnoea [None]

NARRATIVE: CASE EVENT DATE: 20230901
